FAERS Safety Report 11805707 (Version 2)
Quarter: 2015Q4

REPORT INFORMATION
  Report Type: Spontaneous
  Country: JP (occurrence: JP)
  Receive Date: 20151207
  Receipt Date: 20151219
  Transmission Date: 20160305
  Serious: Yes (Life-Threatening, Other)
  Sender: FDA-Public Use
  Company Number: JP-UCBSA-2015039156

PATIENT
  Age: 64 Year
  Sex: Male

DRUGS (10)
  1. RILMAZAFONE HYDROCHLORIDE [Concomitant]
     Active Substance: RILMAZAFONE HYDROCHLORIDE
     Indication: INSOMNIA
     Dosage: UNK
     Route: 048
  2. NEUPRO [Suspect]
     Active Substance: ROTIGOTINE
     Indication: PARKINSON^S DISEASE
     Dosage: 9 MG/DOSE
     Route: 062
     Dates: start: 201503
  3. SEROQUEL [Suspect]
     Active Substance: QUETIAPINE FUMARATE
     Indication: SCHIZOPHRENIA
     Dosage: UNK
     Route: 048
     Dates: start: 201503
  4. TAKEPRON [Concomitant]
     Active Substance: LANSOPRAZOLE
     Indication: PRODUCT USED FOR UNKNOWN INDICATION
     Dosage: 15 MG
     Route: 048
  5. MENESIT [Concomitant]
     Active Substance: CARBIDOPA\LEVODOPA
     Indication: PRODUCT USED FOR UNKNOWN INDICATION
     Dosage: 450 MG/DAY
     Dates: start: 201402, end: 201503
  6. NEODOPASOL [Suspect]
     Active Substance: BENSERAZIDE HYDROCHLORIDE\LEVODOPA
     Indication: PARKINSON^S DISEASE
     Dosage: 150MG/DOSE
     Route: 048
     Dates: start: 201503
  7. SELENICA-R [Suspect]
     Active Substance: VALPROATE SODIUM
     Indication: PRODUCT USED FOR UNKNOWN INDICATION
     Dosage: 200 MG/DOSE
     Route: 048
     Dates: start: 20151009
  8. SYMMETREL [Concomitant]
     Active Substance: AMANTADINE HYDROCHLORIDE
     Indication: PRODUCT USED FOR UNKNOWN INDICATION
     Dosage: UNK
  9. FP-OD [Concomitant]
     Active Substance: SELEGILINE HYDROCHLORIDE
     Indication: PARKINSON^S DISEASE
     Dosage: 2.5 MG
     Route: 048
     Dates: start: 201402
  10. MIRAPEX [Concomitant]
     Active Substance: PRAMIPEXOLE DIHYDROCHLORIDE
     Indication: PRODUCT USED FOR UNKNOWN INDICATION
     Dosage: UNK
     Dates: start: 201402, end: 201503

REACTIONS (1)
  - Suicide attempt [Recovered/Resolved]

NARRATIVE: CASE EVENT DATE: 20151115
